FAERS Safety Report 10169932 (Version 3)
Quarter: 2014Q3

REPORT INFORMATION
  Report Type: Spontaneous
  Country: US (occurrence: US)
  Receive Date: 20140513
  Receipt Date: 20140902
  Transmission Date: 20150326
  Serious: Yes (Other)
  Sender: FDA-Public Use
  Company Number: US-ASTRAZENECA-2012SE09645

PATIENT
  Age: 48 Year
  Sex: Female
  Weight: 101.2 kg

DRUGS (35)
  1. CRESTOR [Suspect]
     Active Substance: ROSUVASTATIN CALCIUM
     Indication: BLOOD CHOLESTEROL INCREASED
     Route: 048
     Dates: start: 20121206
  2. PLAQUENIL [Concomitant]
     Active Substance: HYDROXYCHLOROQUINE SULFATE
     Indication: SYSTEMIC LUPUS ERYTHEMATOSUS
     Route: 048
     Dates: start: 20140801
  3. MELAXICAM [Concomitant]
     Indication: SCIATICA
     Route: 048
     Dates: start: 2010
  4. IRON SUPPLEMENT FERROUS GLUCONATE [Concomitant]
     Indication: ANAEMIA
     Route: 048
     Dates: start: 2008
  5. JANUVIA [Concomitant]
     Active Substance: SITAGLIPTIN PHOSPHATE
     Indication: DIABETES MELLITUS
     Route: 048
     Dates: start: 20130429
  6. CRESTOR [Suspect]
     Active Substance: ROSUVASTATIN CALCIUM
     Indication: BLOOD CHOLESTEROL INCREASED
     Route: 048
  7. COLCRYS [Concomitant]
     Active Substance: COLCHICINE
     Indication: BEHCET^S SYNDROME
     Route: 048
     Dates: start: 201311
  8. HCTZ [Concomitant]
     Active Substance: HYDROCHLOROTHIAZIDE
     Indication: FLUID RETENTION
     Route: 048
     Dates: start: 1989
  9. METFORMIN [Concomitant]
     Active Substance: METFORMIN HYDROCHLORIDE
     Indication: DIABETES MELLITUS
     Route: 048
     Dates: start: 2003
  10. LANTUS INSULIN [Concomitant]
     Indication: DIABETES MELLITUS
     Dosage: 60 UNITS SQ BID
     Route: 058
     Dates: start: 20130429
  11. TRAZODONE [Concomitant]
     Active Substance: TRAZODONE HYDROCHLORIDE
     Indication: SLEEP DISORDER
     Route: 048
     Dates: start: 2011
  12. NEURONTIN [Concomitant]
     Active Substance: GABAPENTIN
     Route: 048
     Dates: start: 20140801
  13. NEXIUM [Suspect]
     Active Substance: ESOMEPRAZOLE MAGNESIUM
     Indication: GASTROOESOPHAGEAL REFLUX DISEASE
     Route: 048
  14. NEXIUM [Suspect]
     Active Substance: ESOMEPRAZOLE MAGNESIUM
     Indication: GASTROOESOPHAGEAL REFLUX DISEASE
     Route: 048
     Dates: start: 1999
  15. ULTRAM [Concomitant]
     Active Substance: TRAMADOL HYDROCHLORIDE
     Indication: FIBROMYALGIA
     Route: 048
     Dates: start: 20140801
  16. GABAPENTIN. [Concomitant]
     Active Substance: GABAPENTIN
     Indication: SYSTEMIC LUPUS ERYTHEMATOSUS
     Dosage: 300MG SIX PER DAY
     Route: 048
     Dates: start: 201311
  17. SAVELLA [Concomitant]
     Active Substance: MILNACIPRAN HYDROCHLORIDE
     Indication: FIBROMYALGIA
     Route: 048
     Dates: start: 2010
  18. VITAMIN D3 [Concomitant]
     Active Substance: CHOLECALCIFEROL
     Indication: VITAMIN D DEFICIENCY
     Dosage: 1000 INTERNATIONAL UNITS, DAILY
     Route: 048
     Dates: start: 2008
  19. LANTUS INSULIN [Concomitant]
     Indication: DIABETES MELLITUS
     Dosage: 66 UNITS DAILY
     Route: 058
     Dates: start: 2008
  20. ULTRAM [Concomitant]
     Active Substance: TRAMADOL HYDROCHLORIDE
     Indication: PAIN
     Route: 048
     Dates: start: 20140801
  21. DITROPAN XL [Concomitant]
     Active Substance: OXYBUTYNIN CHLORIDE
     Indication: URINARY INCONTINENCE
     Route: 048
     Dates: start: 20131106
  22. METFORMIN [Concomitant]
     Active Substance: METFORMIN HYDROCHLORIDE
     Indication: DIABETES MELLITUS
     Route: 048
     Dates: start: 2003
  23. MOBIC [Concomitant]
     Active Substance: MELOXICAM
     Indication: PAIN
     Dosage: TWO TIMES DAILY AS NEEDED
     Route: 048
  24. ULTRAM [Concomitant]
     Active Substance: TRAMADOL HYDROCHLORIDE
     Indication: PAIN
     Route: 048
     Dates: start: 2004
  25. SAVELLA [Concomitant]
     Active Substance: MILNACIPRAN HYDROCHLORIDE
     Indication: FIBROMYALGIA
     Route: 048
     Dates: start: 20140711
  26. PRINZIDE,ZESTORETIC [Concomitant]
     Route: 048
     Dates: start: 20140801
  27. GLUCOPHAGE [Concomitant]
     Active Substance: METFORMIN HYDROCHLORIDE
     Route: 048
     Dates: start: 20140613
  28. GLUCOPHAGE [Concomitant]
     Active Substance: METFORMIN HYDROCHLORIDE
     Route: 048
     Dates: start: 20140613
  29. GABAPENTIN. [Concomitant]
     Active Substance: GABAPENTIN
     Indication: FATIGUE
     Dosage: 300MG SIX PER DAY
     Route: 048
     Dates: start: 201311
  30. PLAQUENIL [Concomitant]
     Active Substance: HYDROXYCHLOROQUINE SULFATE
     Indication: SYSTEMIC LUPUS ERYTHEMATOSUS
     Route: 048
     Dates: start: 201311
  31. ULTRAM [Concomitant]
     Active Substance: TRAMADOL HYDROCHLORIDE
     Indication: FIBROMYALGIA
     Route: 048
     Dates: start: 2004
  32. PLAQUENIL [Concomitant]
     Active Substance: HYDROXYCHLOROQUINE SULFATE
     Indication: BEHCET^S SYNDROME
     Route: 048
     Dates: start: 201311
  33. JANUVIA [Concomitant]
     Active Substance: SITAGLIPTIN PHOSPHATE
     Indication: DIABETES MELLITUS
     Route: 048
     Dates: start: 2008
  34. CRESTOR [Suspect]
     Active Substance: ROSUVASTATIN CALCIUM
     Indication: BLOOD CHOLESTEROL INCREASED
     Route: 048
     Dates: start: 1999
  35. PLAQUENIL [Concomitant]
     Active Substance: HYDROXYCHLOROQUINE SULFATE
     Indication: BEHCET^S SYNDROME
     Route: 048
     Dates: start: 20140801

REACTIONS (30)
  - Intervertebral disc protrusion [Not Recovered/Not Resolved]
  - Sleep disorder due to a general medical condition [Not Recovered/Not Resolved]
  - Systemic lupus erythematosus [Not Recovered/Not Resolved]
  - Anaemia [Not Recovered/Not Resolved]
  - Red cell distribution width increased [Unknown]
  - Intentional product misuse [Unknown]
  - Drug prescribing error [Unknown]
  - Aphagia [Unknown]
  - Delayed sleep phase [Not Recovered/Not Resolved]
  - High density lipoprotein decreased [Unknown]
  - Abdominal pain [Unknown]
  - Abdominal pain upper [Unknown]
  - Vitamin D deficiency [Not Recovered/Not Resolved]
  - Gastritis [Not Recovered/Not Resolved]
  - Gastrooesophageal reflux disease [Recovered/Resolved]
  - Eructation [Unknown]
  - Blood chloride decreased [Unknown]
  - Type 2 diabetes mellitus [Not Recovered/Not Resolved]
  - Gastrooesophageal reflux disease [Unknown]
  - Hypertonic bladder [Not Recovered/Not Resolved]
  - Glycosylated haemoglobin decreased [Unknown]
  - Mean platelet volume decreased [Unknown]
  - Blood triglycerides increased [Unknown]
  - Anaemia vitamin B12 deficiency [Unknown]
  - Alanine aminotransferase increased [Unknown]
  - Drug dose omission [Not Recovered/Not Resolved]
  - Behcet^s syndrome [Not Recovered/Not Resolved]
  - Urinary incontinence [Not Recovered/Not Resolved]
  - Ulcer [Recovered/Resolved]
  - Intentional product misuse [Not Recovered/Not Resolved]

NARRATIVE: CASE EVENT DATE: 2003
